FAERS Safety Report 10219656 (Version 1)
Quarter: 2014Q2

REPORT INFORMATION
  Report Type: Spontaneous
  Country: BR (occurrence: BR)
  Receive Date: 20140605
  Receipt Date: 20140605
  Transmission Date: 20141212
  Serious: Yes (Other)
  Sender: FDA-Public Use
  Company Number: BR-PFIZER INC-2014151592

PATIENT
  Sex: Male

DRUGS (5)
  1. CELEBRA [Suspect]
     Indication: OSTEOARTHRITIS
     Dosage: STRENGTH 200MG
     Route: 048
     Dates: start: 201405
  2. CELEBRA [Suspect]
     Indication: ARTHRITIS
  3. CELEBRA [Suspect]
     Indication: MYALGIA
  4. CELEBRA [Suspect]
     Indication: ARTHRALGIA
  5. CELEBRA [Suspect]
     Indication: BACK PAIN

REACTIONS (6)
  - Glaucoma [Unknown]
  - Drug hypersensitivity [Unknown]
  - Urticaria [Unknown]
  - Pruritus [Unknown]
  - Erythema [Unknown]
  - Burning sensation [Unknown]
